FAERS Safety Report 16994993 (Version 2)
Quarter: 2020Q4

REPORT INFORMATION
  Report Type: Spontaneous
  Country: JP (occurrence: JP)
  Receive Date: 20191105
  Receipt Date: 20201119
  Transmission Date: 20210113
  Serious: Yes (Other)
  Sender: FDA-Public Use
  Company Number: JP-BAYER-2019-194803

PATIENT
  Age: 78 Year
  Sex: Male
  Weight: 58 kg

DRUGS (17)
  1. DENOTAS [Concomitant]
     Active Substance: CALCIUM CARBONATE\CHOLECALCIFEROL\MAGNESIUM CARBONATE
     Indication: HYPOCALCAEMIA
     Dosage: UNK
     Route: 048
     Dates: start: 20190906
  2. LIMAPROST ALFADEX [Concomitant]
     Active Substance: LIMAPROST
  3. ZYTIGA [Concomitant]
     Active Substance: ABIRATERONE ACETATE
     Indication: PROSTATE CANCER
     Dosage: 250 MG, QD
     Route: 048
     Dates: start: 20171206, end: 20190904
  4. XOFIGO [Suspect]
     Active Substance: RADIUM RA-223 DICHLORIDE
     Indication: METASTASES TO BONE
     Dosage: 55 KBQ/KG, ONCE
     Route: 042
     Dates: start: 20200207, end: 20200207
  5. DEXAMETHASONE. [Concomitant]
     Active Substance: DEXAMETHASONE
     Indication: PROSTATE CANCER
     Dosage: 0.5 MG, QD
     Route: 048
     Dates: start: 20191004, end: 20200220
  6. DICLOFENAC SODIUM. [Concomitant]
     Active Substance: DICLOFENAC SODIUM
  7. STRONTIUM 89 CHLORIDE [Concomitant]
  8. AMLODIPINE [Concomitant]
     Active Substance: AMLODIPINE BESYLATE
  9. XOFIGO [Suspect]
     Active Substance: RADIUM RA-223 DICHLORIDE
     Indication: METASTASES TO BONE
     Dosage: 55 KBQ/KG, ONCE
     Route: 042
     Dates: start: 20191115, end: 20191115
  10. RANMARK [Concomitant]
     Active Substance: DENOSUMAB
     Indication: METASTASES TO BONE
     Dosage: DAILY DOSE 120 MG
     Route: 058
     Dates: start: 20190906
  11. PREDNISOLONE. [Concomitant]
     Active Substance: PREDNISOLONE
     Indication: PROSTATE CANCER
     Dosage: DAILY DOSE 2 DF
     Route: 048
     Dates: start: 20171206, end: 20190918
  12. XOFIGO [Suspect]
     Active Substance: RADIUM RA-223 DICHLORIDE
     Indication: METASTASES TO BONE
     Dosage: 55 KBQ/KG, ONCE
     Route: 042
     Dates: start: 20190920, end: 20190920
  13. LANSOPRAZOLE. [Concomitant]
     Active Substance: LANSOPRAZOLE
     Indication: GASTRIC ULCER
     Dosage: 15 MG, QD
     Route: 048
     Dates: start: 20171206
  14. XOFIGO [Suspect]
     Active Substance: RADIUM RA-223 DICHLORIDE
     Indication: HORMONE-REFRACTORY PROSTATE CANCER
     Dosage: 55 KBQ/KG, ONCE
     Route: 042
     Dates: start: 20191018, end: 20191018
  15. XOFIGO [Suspect]
     Active Substance: RADIUM RA-223 DICHLORIDE
     Indication: METASTASES TO BONE
     Dosage: 55 KBQ/KG, ONCE
     Route: 042
     Dates: start: 20191213, end: 20191213
  16. XOFIGO [Suspect]
     Active Substance: RADIUM RA-223 DICHLORIDE
     Indication: METASTASES TO BONE
     Dosage: 55 KBQ/KG, ONCE
     Route: 042
     Dates: start: 20200110, end: 20200110
  17. LEUPLIN [Concomitant]
     Active Substance: LEUPROLIDE ACETATE
     Dosage: 22.5MG EVERY 6 MONTHS
     Dates: start: 20160224

REACTIONS (2)
  - Decreased appetite [Recovered/Resolved]
  - Haemorrhage subcutaneous [Recovered/Resolved]

NARRATIVE: CASE EVENT DATE: 20190921
